FAERS Safety Report 6377573-5 (Version None)
Quarter: 2009Q3

REPORT INFORMATION
  Report Type: 
  Country: None (occurrence: None)
  Receive Date: 20090921
  Receipt Date: 20090803
  Transmission Date: 20100115
  Serious: Yes (Hospitalization)
  Sender: FDA-Public Use
  Company Number: 1-19393382

PATIENT
  Age: 50 Year
  Sex: Female

DRUGS (5)
  1. CLINDAMYCIN (STRENGTH AND MANUFACTURER UNKNOWN) [Suspect]
     Indication: FURUNCLE
     Dosage: ORAL
     Route: 048
  2. RISEDRONATE SODIUM [Suspect]
     Indication: OSTEOPOROSIS
     Dosage: ORAL
     Route: 048
  3. CALCIUM [Concomitant]
  4. VITAMIN D [Concomitant]
  5. RISEDRONIC ACID/RISEDRONATE [Concomitant]

REACTIONS (12)
  - ABDOMINAL PAIN UPPER [None]
  - AGITATION [None]
  - BLOOD PRESSURE SYSTOLIC INCREASED [None]
  - CHEST PAIN [None]
  - CHEST X-RAY ABNORMAL [None]
  - ELECTROCARDIOGRAM ABNORMAL [None]
  - GENERAL PHYSICAL CONDITION ABNORMAL [None]
  - HEART RATE INCREASED [None]
  - HEPATIC STEATOSIS [None]
  - OESOPHAGITIS [None]
  - SI QIII TIII PATTERN [None]
  - SINUS TACHYCARDIA [None]
